FAERS Safety Report 10920104 (Version 3)
Quarter: 2015Q3

REPORT INFORMATION
  Report Type: Spontaneous
  Country: PL (occurrence: PL)
  Receive Date: 20150317
  Receipt Date: 20150721
  Transmission Date: 20151125
  Serious: Yes (Hospitalization, Other)
  Sender: FDA-Public Use
  Company Number: PHHY2015PL025417

PATIENT
  Sex: Female
  Weight: 70 kg

DRUGS (1)
  1. EXTAVIA [Suspect]
     Active Substance: INTERFERON BETA-1B
     Indication: MULTIPLE SCLEROSIS
     Dosage: 250 UG, UNK
     Route: 058
     Dates: start: 20140120

REACTIONS (8)
  - Asthenia [Unknown]
  - Feeling abnormal [Unknown]
  - Body temperature decreased [Unknown]
  - Malaise [Unknown]
  - Chills [Unknown]
  - Drug ineffective [Unknown]
  - Nasopharyngitis [Unknown]
  - Multiple sclerosis relapse [Unknown]
